FAERS Safety Report 4501313-5 (Version None)
Quarter: 2004Q3

REPORT INFORMATION
  Report Type: 
  Country: None (occurrence: None)
  Receive Date: 20040928
  Receipt Date: 20040817
  Transmission Date: 20050211
  Serious: No
  Sender: FDA-Public Use
  Company Number: 04P-163-0270823-00

PATIENT
  Sex: Female
  Weight: 104.3273 kg

DRUGS (4)
  1. HUMIRA [Suspect]
     Indication: RHEUMATOID ARTHRITIS
     Dosage: SEE IMAGE
     Route: 058
     Dates: start: 20040401, end: 20040501
  2. HUMIRA [Suspect]
     Indication: RHEUMATOID ARTHRITIS
     Dosage: SEE IMAGE
     Route: 058
     Dates: start: 20040601, end: 20040817
  3. CELECOXIB [Concomitant]
  4. IBUPROFEN [Concomitant]

REACTIONS (6)
  - ARTHRALGIA [None]
  - BODY TEMPERATURE INCREASED [None]
  - EAR INFECTION [None]
  - PAIN [None]
  - SINUS PAIN [None]
  - SINUSITIS [None]
